FAERS Safety Report 5895644-4 (Version None)
Quarter: 2008Q3

REPORT INFORMATION
  Report Type: 
  Country: None (occurrence: None)
  Receive Date: 20080828
  Receipt Date: 20070905
  Transmission Date: 20090109
  Serious: Yes (Other)
  Sender: FDA-Public Use
  Company Number: 161066USA

PATIENT
  Sex: Male

DRUGS (1)
  1. CARBAMAZEPINE [Suspect]
     Indication: CONVULSION
     Dosage: 400 MG (200 MG,2 IN 1 D),ORAL
     Route: 048
     Dates: start: 20070806, end: 20070825

REACTIONS (9)
  - ANTICONVULSANT DRUG LEVEL [None]
  - ANXIETY [None]
  - CONVULSION [None]
  - DEPRESSED MOOD [None]
  - DEPRESSION [None]
  - DIZZINESS [None]
  - DRUG TOXICITY [None]
  - FATIGUE [None]
  - FEELING ABNORMAL [None]
